FAERS Safety Report 23922637 (Version 1)
Quarter: 2024Q2

REPORT INFORMATION
  Report Type: Spontaneous
  Country: AU (occurrence: AU)
  Receive Date: 20240531
  Receipt Date: 20240531
  Transmission Date: 20240715
  Serious: Yes (Death, Life-Threatening, Hospitalization, Other)
  Sender: FDA-Public Use
  Company Number: None

PATIENT
  Age: 73 Year
  Sex: Male
  Weight: 105 kg

DRUGS (24)
  1. BORTEZOMIB [Suspect]
     Active Substance: BORTEZOMIB
     Indication: Plasma cell myeloma
     Dosage: 1 MG/M2
     Route: 058
     Dates: start: 20230819
  2. BORTEZOMIB [Suspect]
     Active Substance: BORTEZOMIB
     Dosage: 1.3 MG/M2
     Route: 058
     Dates: start: 20230503, end: 20230503
  3. DARATUMUMAB [Suspect]
     Active Substance: DARATUMUMAB
     Indication: Plasma cell myeloma
     Dosage: 1800 MG
     Route: 058
     Dates: start: 20230503
  4. DARATUMUMAB [Suspect]
     Active Substance: DARATUMUMAB
     Dosage: PRIOR TO THE EVENT ONSET, THE SUBJECT RECEIVED HIS MOST RECENT DOSE OF DARATUMUMAB STUDY THERAPY ON
     Route: 065
  5. DEXAMETHASONE [Suspect]
     Active Substance: DEXAMETHASONE
     Dosage: 12 MG
     Route: 048
     Dates: start: 20230819, end: 20230819
  6. DEXAMETHASONE [Suspect]
     Active Substance: DEXAMETHASONE
     Indication: Plasma cell myeloma
     Dosage: 20 MG
     Route: 048
     Dates: start: 20230503, end: 20230503
  7. ATACAND [Concomitant]
     Active Substance: CANDESARTAN CILEXETIL
     Indication: Hypertension
     Dosage: 60 MG
     Route: 048
  8. ATENOLOL [Concomitant]
     Active Substance: ATENOLOL
     Indication: Hypertension
     Dosage: 50 MG
     Route: 048
  9. CHOLECALCIFEROL [Concomitant]
     Active Substance: CHOLECALCIFEROL
     Indication: Supplementation therapy
     Dosage: 800 IU
     Route: 048
  10. CYANOCOBALAMIN [Concomitant]
     Active Substance: CYANOCOBALAMIN
     Indication: Vitamin supplementation
     Route: 048
  11. FILGRASTIM [Concomitant]
     Active Substance: FILGRASTIM
     Indication: Neutropenia
     Dosage: UNK
     Route: 058
     Dates: start: 20230726, end: 20230825
  12. FISH OIL [Concomitant]
     Active Substance: FISH OIL
     Indication: Supplementation therapy
     Route: 048
  13. GLICLAZIDE [Concomitant]
     Active Substance: GLICLAZIDE
     Indication: Type 2 diabetes mellitus
     Dosage: 60 MG
     Route: 048
     Dates: start: 20221204
  14. GLUCOSAMINE [Concomitant]
     Active Substance: GLUCOSAMINE
     Indication: Supplementation therapy
     Route: 048
  15. MAGNESIUM [Concomitant]
     Active Substance: MAGNESIUM
     Indication: Supplementation therapy
     Route: 048
  16. NOVORAPID [Concomitant]
     Active Substance: INSULIN ASPART
     Indication: Type 2 diabetes mellitus
     Dosage: 6 IU
     Route: 058
  17. PREGABALIN [Concomitant]
     Active Substance: PREGABALIN
     Indication: Peripheral sensory neuropathy
     Dosage: 150 MG, QD
     Route: 048
     Dates: start: 20221207
  18. ROSUVASTATIN [Concomitant]
     Active Substance: ROSUVASTATIN
     Indication: Hypercholesterolaemia
     Route: 065
  19. ROSUVASTATIN [Concomitant]
     Active Substance: ROSUVASTATIN
     Indication: Hypercholesterolaemia
     Route: 065
  20. RYZODEG 70/30 [Concomitant]
     Active Substance: INSULIN ASPART\INSULIN DEGLUDEC
     Indication: Type 2 diabetes mellitus
     Dosage: UNK
     Route: 058
     Dates: start: 20221204
  21. LINAGLIPTIN [Concomitant]
     Active Substance: LINAGLIPTIN
     Indication: Type 2 diabetes mellitus
     Dosage: 5 MG
     Route: 048
     Dates: start: 20221204
  22. UBIDECARENONE [Concomitant]
     Active Substance: UBIDECARENONE
     Indication: Vitamin supplementation
     Route: 048
  23. VALACYCLOVIR HYDROCHLORIDE [Concomitant]
     Active Substance: VALACYCLOVIR HYDROCHLORIDE
     Indication: Prophylaxis
     Route: 065
  24. VALACYCLOVIR HYDROCHLORIDE [Concomitant]
     Active Substance: VALACYCLOVIR HYDROCHLORIDE
     Indication: Prophylaxis
     Route: 065

REACTIONS (1)
  - Pneumonia influenzal [Fatal]

NARRATIVE: CASE EVENT DATE: 20230825
